FAERS Safety Report 9353345 (Version 1)
Quarter: 2013Q2

REPORT INFORMATION
  Report Type: Spontaneous
  Country: FR (occurrence: FR)
  Receive Date: 20130618
  Receipt Date: 20130618
  Transmission Date: 20140414
  Serious: Yes (Hospitalization)
  Sender: FDA-Public Use
  Company Number: FR-JNJFOC-20130608474

PATIENT
  Age: 45 Year
  Sex: Female

DRUGS (5)
  1. REMICADE [Suspect]
     Indication: RHEUMATOID ARTHRITIS
     Dosage: DOSE: 0.0333 DF (1 DF)
     Route: 042
     Dates: start: 20130510, end: 201305
  2. REMICADE [Suspect]
     Indication: RHEUMATOID ARTHRITIS
     Dosage: DOSE: 0.0333 DF (1 DF)
     Route: 042
     Dates: start: 201301
  3. IXPRIM [Concomitant]
     Route: 065
  4. EFFERALGAN [Concomitant]
     Route: 065
  5. XANAX [Concomitant]
     Route: 065

REACTIONS (3)
  - Skin reaction [Recovered/Resolved]
  - Pruritus [Recovered/Resolved]
  - Infusion related reaction [Recovered/Resolved]
